FAERS Safety Report 4641959-7 (Version None)
Quarter: 2005Q2

REPORT INFORMATION
  Report Type: 
  Country: None (occurrence: None)
  Receive Date: 20050420
  Receipt Date: 20050405
  Transmission Date: 20051028
  Serious: Yes (Other)
  Sender: FDA-Public Use
  Company Number: US_0504115243

PATIENT
  Age: 54 Year
  Sex: Male
  Weight: 114 kg

DRUGS (1)
  1. HUMULIN R [Suspect]
     Indication: DIABETES MELLITUS INSULIN-DEPENDENT
     Dosage: 200 U DAY
     Dates: start: 19990101

REACTIONS (3)
  - HERNIA [None]
  - PHARMACEUTICAL PRODUCT COMPLAINT [None]
  - WEIGHT INCREASED [None]
